FAERS Safety Report 4774087-0 (Version None)
Quarter: 2005Q3

REPORT INFORMATION
  Report Type: 
  Country: None (occurrence: None)
  Receive Date: 20050919
  Receipt Date: 20050908
  Transmission Date: 20060218
  Serious: Yes (Death)
  Sender: FDA-Public Use
  Company Number: 2005-08-1955

PATIENT
  Age: 72 Year
  Sex: Male

DRUGS (3)
  1. FLUTAMIDE [Suspect]
     Indication: PROSTATE CANCER
     Dosage: 373 MG ORAL
     Route: 048
     Dates: start: 20041116, end: 20050407
  2. GOSERELIN ACETATE [Concomitant]
  3. ATENOLOL [Concomitant]

REACTIONS (14)
  - COMA [None]
  - DEPRESSED LEVEL OF CONSCIOUSNESS [None]
  - GASTRIC HAEMORRHAGE [None]
  - HAEMORRHAGIC DIATHESIS [None]
  - HEPATIC FAILURE [None]
  - HEPATITIS FULMINANT [None]
  - HYPERAMMONAEMIA [None]
  - LUNG CANCER METASTATIC [None]
  - METASTASES TO LIVER [None]
  - MOUTH HAEMORRHAGE [None]
  - MULTI-ORGAN FAILURE [None]
  - PORTAL VEIN OCCLUSION [None]
  - THROMBOCYTOPENIA [None]
  - VENTRICULAR ARRHYTHMIA [None]
